FAERS Safety Report 4915298-0 (Version None)
Quarter: 2006Q1

REPORT INFORMATION
  Report Type: 
  Country: None (occurrence: None)
  Receive Date: 20060216
  Receipt Date: 20060216
  Transmission Date: 20060701
  Serious: No
  Sender: FDA-Public Use
  Company Number: None

PATIENT
  Sex: Male
  Weight: 34.4734 kg

DRUGS (5)
  1. SEROQUEL [Suspect]
     Indication: BIPOLAR DISORDER
     Dosage: SEE IMAGE
  2. SEROQUEL [Suspect]
     Indication: PSYCHOTIC DISORDER
     Dosage: SEE IMAGE
  3. RISPERDAL [Suspect]
     Indication: BIPOLAR DISORDER
  4. RISPERDAL [Suspect]
     Indication: PSYCHOTIC DISORDER
  5. LITHIUM CR [Concomitant]

REACTIONS (2)
  - WHITE BLOOD CELL COUNT DECREASED [None]
  - WHITE BLOOD CELL COUNT INCREASED [None]
